FAERS Safety Report 5030586-8 (Version None)
Quarter: 2006Q2

REPORT INFORMATION
  Report Type: 
  Country: None (occurrence: None)
  Receive Date: 20060615
  Receipt Date: 20060606
  Transmission Date: 20061013
  Serious: Yes (Hospitalization, Other)
  Sender: FDA-Public Use
  Company Number: 2006053640

PATIENT
  Sex: Female

DRUGS (3)
  1. LYRICA [Suspect]
     Indication: DIABETIC NEUROPATHY
     Dosage: ORAL
     Route: 048
     Dates: start: 20050101
  2. ASPIRIN [Concomitant]
  3. PREDNISOLONE(PREDNISONE) [Concomitant]

REACTIONS (11)
  - ATRIAL FIBRILLATION [None]
  - BLOOD FIBRINOGEN INCREASED [None]
  - BLOOD GLUCOSE INCREASED [None]
  - CARDIAC FAILURE CONGESTIVE [None]
  - COAGULATION FACTOR IX LEVEL INCREASED [None]
  - CONTUSION [None]
  - ECCHYMOSIS [None]
  - HAEMATOCRIT DECREASED [None]
  - HAEMOGLOBIN DECREASED [None]
  - LABORATORY TEST ABNORMAL [None]
  - VON WILLEBRAND'S FACTOR ANTIGEN INCREASED [None]
